FAERS Safety Report 8902280 (Version 2)
Quarter: 2012Q4

REPORT INFORMATION
  Report Type: Report from Study
  Country: AR (occurrence: AR)
  Receive Date: 20121112
  Receipt Date: 20121217
  Transmission Date: 20130627
  Serious: Yes (Death, Other)
  Sender: FDA-Public Use
  Company Number: AR-ASTELLAS-2010US001903

PATIENT
  Age: 57 Year
  Sex: Female

DRUGS (15)
  1. UNSPECIFIED INGREDIENT [Suspect]
     Indication: ASPERGILLOSIS
     Dosage: UNK qid
     Route: 042
     Dates: start: 20090112, end: 20090226
  2. TACROLIMUS SYSTEMIC [Suspect]
     Indication: BONE MARROW TRANSPLANT
     Dosage: 0.5 mg, UID/QD
     Route: 042
     Dates: start: 20090105, end: 20090106
  3. TACROLIMUS SYSTEMIC [Suspect]
     Dosage: 2 - 7 mg, UID/QD
     Route: 048
     Dates: start: 20090107, end: 20090227
  4. DELTISONA B [Concomitant]
     Indication: IMMUNOSUPPRESSION
     Dosage: 120 mg, UID/QD
     Route: 048
     Dates: start: 20090106, end: 20090226
  5. TRIMETHOPRIM SULFAMETHOXAZOLE [Concomitant]
     Indication: PRODUCT USED FOR UNKNOWN INDICATION
     Dosage: 160/800 mg 2 day for week
     Route: 048
     Dates: start: 20090105, end: 20090306
  6. SUCRALFATE [Concomitant]
     Indication: PRODUCT USED FOR UNKNOWN INDICATION
     Dosage: 80 mg, qid
     Route: 048
     Dates: start: 20090222
  7. FUROSEMIDE [Concomitant]
     Indication: PRODUCT USED FOR UNKNOWN INDICATION
     Dosage: 10 mg, UID/QD
     Route: 062
     Dates: start: 20090223, end: 20090305
  8. RANITIDINE [Concomitant]
     Indication: PRODUCT USED FOR UNKNOWN INDICATION
     Dosage: 300 mg, UID/QD
     Route: 042
     Dates: start: 20090223, end: 20090305
  9. VANCOMYCIN [Concomitant]
     Indication: PRODUCT USED FOR UNKNOWN INDICATION
     Dosage: 500-1000 mg, qid
     Route: 048
     Dates: start: 20090223, end: 20090305
  10. ACYCLOVIR                          /00587301/ [Concomitant]
     Indication: PRODUCT USED FOR UNKNOWN INDICATION
     Dosage: 500 mg, bid
     Route: 042
     Dates: start: 20090223, end: 20090225
  11. FOLIC ACID [Concomitant]
     Indication: PRODUCT USED FOR UNKNOWN INDICATION
     Dosage: 10 mg, UID/QD
     Route: 048
     Dates: start: 20090223, end: 20090305
  12. ALBUMIN [Concomitant]
     Indication: PRODUCT USED FOR UNKNOWN INDICATION
     Dosage: 150 ml, tid
     Route: 042
     Dates: start: 20090223, end: 20090227
  13. VITAMIN C                          /00008001/ [Concomitant]
     Indication: PRODUCT USED FOR UNKNOWN INDICATION
     Dosage: 500 mg, UID/QD
     Route: 042
     Dates: start: 20090223, end: 20090228
  14. ERYTHROPOETIN [Concomitant]
     Indication: PRODUCT USED FOR UNKNOWN INDICATION
     Dosage: 1000 mg, Total Dose
     Route: 058
     Dates: start: 20090223, end: 20090223
  15. LEVOTHYROXINE [Concomitant]
     Indication: PRODUCT USED FOR UNKNOWN INDICATION
     Dosage: 50 ug, UID/QD
     Route: 048
     Dates: start: 20090105, end: 20090306

REACTIONS (1)
  - Toxicity to various agents [Fatal]
